FAERS Safety Report 11169857 (Version 1)
Quarter: 2015Q2

REPORT INFORMATION
  Report Type: Spontaneous
  Country: US (occurrence: None)
  Receive Date: 20150604
  Receipt Date: 20150604
  Transmission Date: 20150821
  Serious: Yes (Hospitalization, Other)
  Sender: FDA-Public Use
  Company Number: 1615217

PATIENT
  Age: 39 Year
  Sex: Male
  Weight: 129.73 kg

DRUGS (3)
  1. VALPROIC ACID (NON-SPECIFIC) [Suspect]
     Active Substance: VALPROIC ACID
     Indication: BIPOLAR DISORDER
  2. QUETIAPINE [Suspect]
     Active Substance: QUETIAPINE
     Indication: BIPOLAR DISORDER
  3. LORAZEPAM. [Suspect]
     Active Substance: LORAZEPAM
     Indication: ANXIETY

REACTIONS (6)
  - Hyperlipidaemia [None]
  - Metabolic acidosis [None]
  - Drug interaction [None]
  - Blood cholesterol increased [None]
  - Blood triglycerides increased [None]
  - Metabolic syndrome [None]
